FAERS Safety Report 9966116 (Version 1)
Quarter: 2014Q1

REPORT INFORMATION
  Report Type: Report from Study
  Country: US (occurrence: US)
  Receive Date: 20140305
  Receipt Date: 20140305
  Transmission Date: 20141002
  Serious: No
  Sender: FDA-Public Use
  Company Number: US-ABBVIE-13P-163-1121551-00

PATIENT
  Age: 48 Year
  Sex: Male
  Weight: 136.2 kg

DRUGS (4)
  1. HUMIRA [Suspect]
     Indication: PSORIASIS
     Route: 058
     Dates: start: 201305, end: 201307
  2. METFORMIN [Concomitant]
     Indication: DIABETES MELLITUS
  3. LISINOPRIL [Concomitant]
     Indication: HYPERTENSION
  4. LIPITOR [Concomitant]
     Indication: BLOOD CHOLESTEROL INCREASED

REACTIONS (4)
  - Ingrown hair [Recovered/Resolved]
  - Genital lesion [Recovered/Resolved]
  - Wound [Unknown]
  - Staphylococcal infection [Recovered/Resolved]
